FAERS Safety Report 24815898 (Version 1)
Quarter: 2025Q1

REPORT INFORMATION
  Report Type: Spontaneous
  Country: CN (occurrence: CN)
  Receive Date: 20250107
  Receipt Date: 20250107
  Transmission Date: 20250408
  Serious: Yes (Hospitalization)
  Sender: ROCHE
  Company Number: CN-BoehringerIngelheim-2025-BI-000198

PATIENT
  Age: 61 Year
  Sex: Male
  Weight: 65.0 kg

DRUGS (1)
  1. ALTEPLASE [Suspect]
     Active Substance: ALTEPLASE
     Indication: Cerebral infarction
     Route: 042
     Dates: start: 20240603, end: 20240603

REACTIONS (5)
  - Mouth haemorrhage [Recovering/Resolving]
  - Eyelid bleeding [Recovering/Resolving]
  - Haemorrhage [Recovering/Resolving]
  - Dyspnoea [Recovering/Resolving]
  - Lividity [Unknown]

NARRATIVE: CASE EVENT DATE: 20240603
